FAERS Safety Report 19745017 (Version 2)
Quarter: 2021Q3

REPORT INFORMATION
  Report Type: Report from Study
  Country: SE (occurrence: SE)
  Receive Date: 20210825
  Receipt Date: 20210913
  Transmission Date: 20211014
  Serious: Yes (Death, Other)
  Sender: FDA-Public Use
  Company Number: SE-AMGEN-SWENI2021130836

PATIENT
  Age: 57 Year
  Sex: Female

DRUGS (4)
  1. AMG 510 [Suspect]
     Active Substance: AMG-510
     Indication: NON-SMALL CELL LUNG CANCER
     Dosage: 720 MILLIGRAM, QD
     Route: 065
     Dates: start: 20210616, end: 202106
  2. AMG 510 [Suspect]
     Active Substance: AMG-510
     Dosage: 240 MILLIGRAM, QD
     Route: 065
     Dates: start: 20210720
  3. AMG 510 [Suspect]
     Active Substance: AMG-510
     Dosage: 480 MILLIGRAM, QD
     Route: 065
     Dates: start: 20210724
  4. AMG 510 [Suspect]
     Active Substance: AMG-510
     Dosage: 960 MILLIGRAM, QD
     Route: 065
     Dates: start: 202106, end: 20210629

REACTIONS (2)
  - Hepatotoxicity [Recovering/Resolving]
  - Non-small cell lung cancer [Fatal]

NARRATIVE: CASE EVENT DATE: 20210719
